FAERS Safety Report 11917686 (Version 10)
Quarter: 2016Q4

REPORT INFORMATION
  Report Type: Spontaneous
  Country: US (occurrence: US)
  Receive Date: 20160114
  Receipt Date: 20161026
  Transmission Date: 20170206
  Serious: Yes (Hospitalization)
  Sender: FDA-Public Use
  Company Number: US-ACTELION-A-US2016-129734

PATIENT
  Age: 54 Year
  Sex: Female

DRUGS (6)
  1. TRACLEER [Suspect]
     Active Substance: BOSENTAN
     Indication: PULMONARY ARTERIAL HYPERTENSION
     Dosage: 125 MG, BID
     Route: 048
     Dates: start: 20130820
  2. ADCIRCA [Concomitant]
     Active Substance: TADALAFIL
  3. VELETRI [Suspect]
     Active Substance: EPOPROSTENOL
     Dosage: 136 NG/KG, PER MIN
     Route: 042
  4. SILDENAFIL. [Concomitant]
     Active Substance: SILDENAFIL
  5. REVATIO [Concomitant]
     Active Substance: SILDENAFIL CITRATE
  6. VELETRI [Suspect]
     Active Substance: EPOPROSTENOL
     Indication: PULMONARY ARTERIAL HYPERTENSION
     Dosage: 136 NG/KG, PER MIN
     Route: 042
     Dates: start: 20140527

REACTIONS (13)
  - Polypectomy [Recovered/Resolved]
  - Acne [Unknown]
  - Nausea [Unknown]
  - Atrial fibrillation [Recovering/Resolving]
  - Atrial flutter [Recovering/Resolving]
  - Cardiac ablation [Unknown]
  - Osteoporosis [Unknown]
  - Pain in jaw [Unknown]
  - Vomiting [Unknown]
  - Gastrointestinal haemorrhage [Recovering/Resolving]
  - Condition aggravated [Unknown]
  - Oesophagogastroduodenoscopy [Recovered/Resolved]
  - Lymphadenopathy [Unknown]
